FAERS Safety Report 9044605 (Version 2)
Quarter: 2013Q1

REPORT INFORMATION
  Report Type: Report from Study
  Country: CA (occurrence: CA)
  Receive Date: 20130130
  Receipt Date: 20130329
  Transmission Date: 20140127
  Serious: Yes (Other)
  Sender: FDA-Public Use
  Company Number: CA-JNJFOC-20121200216

PATIENT
  Age: 27 Year
  Sex: Female
  Weight: 64.4 kg

DRUGS (5)
  1. REMICADE [Suspect]
     Indication: CROHN^S DISEASE
     Route: 042
  2. REMICADE [Suspect]
     Indication: CROHN^S DISEASE
     Route: 042
     Dates: start: 20111121
  3. VITAMIN D [Concomitant]
     Route: 065
  4. DICLECTIN [Concomitant]
     Route: 065
  5. ZOLOFT [Concomitant]
     Route: 065

REACTIONS (3)
  - Vaginal cyst [Recovered/Resolved]
  - Cystitis [Unknown]
  - Exposure during pregnancy [Not Recovered/Not Resolved]
